FAERS Safety Report 6242701-9 (Version None)
Quarter: 2009Q2

REPORT INFORMATION
  Report Type: 
  Country: None (occurrence: None)
  Receive Date: 20090624
  Receipt Date: 20090618
  Transmission Date: 20091009
  Serious: Yes (Death, Other)
  Sender: FDA-Public Use
  Company Number: PHEH2009US06462

PATIENT
  Sex: Female

DRUGS (9)
  1. ZOMETA [Suspect]
     Indication: METASTASES TO BONE
     Dosage: 4 MG, EVERY 4 WEEKS
     Route: 042
     Dates: start: 20040201, end: 20060801
  2. FASLODEX [Concomitant]
  3. NEULASTA [Concomitant]
  4. DOXIL [Concomitant]
  5. TAMOXIFEN CITRATE [Concomitant]
  6. ALOXI [Concomitant]
  7. DECADRON                                /CAN/ [Concomitant]
  8. ATIVAN [Concomitant]
  9. HEPARIN [Concomitant]

REACTIONS (4)
  - INFECTION [None]
  - MALIGNANT NEOPLASM PROGRESSION [None]
  - OSTEONECROSIS [None]
  - TOOTH EXTRACTION [None]
